FAERS Safety Report 18738793 (Version 2)
Quarter: 2021Q1

REPORT INFORMATION
  Report Type: Spontaneous
  Country: US (occurrence: US)
  Receive Date: 20210114
  Receipt Date: 20210121
  Transmission Date: 20210419
  Serious: Yes (Hospitalization, Other)
  Sender: FDA-Public Use
  Company Number: US-HORIZON-2021HZN00260

PATIENT
  Age: 13 Year
  Sex: Female

DRUGS (2)
  1. RAVICTI [Suspect]
     Active Substance: GLYCEROL PHENYLBUTYRATE
     Indication: UREA CYCLE DISORDER
     Dosage: 2.5 ML BY MOUTH THREE TIMES DAILY WITH MEALS ; TIME INTERVAL: 0.33 D
     Route: 050
     Dates: start: 202008
  2. TITURLINETITURLINE [Concomitant]

REACTIONS (3)
  - Encephalitis meningococcal [Recovered/Resolved]
  - COVID-19 [Not Recovered/Not Resolved]
  - Hyperammonaemic crisis [Recovered/Resolved]
